FAERS Safety Report 5732668-1 (Version None)
Quarter: 2008Q2

REPORT INFORMATION
  Report Type: 
  Country: None (occurrence: None)
  Receive Date: 20080509
  Receipt Date: 20080403
  Transmission Date: 20081010
  Serious: Yes (Other)
  Sender: FDA-Public Use
  Company Number: US-BAYER-200810973BCC

PATIENT
  Age: 33 Year
  Sex: Female
  Weight: 75 kg

DRUGS (8)
  1. BAYER EXTRA STRENGTH BACK + BODY [Suspect]
     Indication: PAIN
     Route: 048
     Dates: start: 20080306
  2. BAYER EXTRA STRENGTH BACK + BODY [Suspect]
     Dates: start: 20080201, end: 20080201
  3. ZYRTEC [Concomitant]
  4. PREVACID [Concomitant]
  5. MUCINEX D [Concomitant]
  6. NIACIN [Concomitant]
  7. INHALER (NOS) [Concomitant]
  8. VITAMIN TAB [Concomitant]

REACTIONS (3)
  - CHEST DISCOMFORT [None]
  - DRUG HYPERSENSITIVITY [None]
  - DYSPNOEA [None]
